FAERS Safety Report 4399813-4 (Version None)
Quarter: 2004Q3

REPORT INFORMATION
  Report Type: 
  Country: None (occurrence: None)
  Receive Date: 20040714
  Receipt Date: 20040701
  Transmission Date: 20050211
  Serious: Yes (Death)
  Sender: FDA-Public Use
  Company Number: 03P-114-0238960-00

PATIENT
  Age: 10 Year
  Sex: Female
  Weight: 21 kg

DRUGS (5)
  1. KALETRA [Suspect]
     Indication: ACQUIRED IMMUNODEFICIENCY SYNDROME
     Dosage: 2 IN 1 D
  2. AMPRENAVIR (AMPRENAVIR) [Suspect]
     Indication: ACQUIRED IMMUNODEFICIENCY SYNDROME
     Dosage: 22.5 MG/KG, 2 IN 1 D
  3. VORICONAZOLE (VORICONAZOLE) [Suspect]
     Indication: OESOPHAGEAL CANDIDIASIS
     Dosage: 200 MG, 2 IN 1 D, PER ORAL
     Route: 048
  4. DIDANOSINE [Concomitant]
  5. NEVIRAPINE [Concomitant]

REACTIONS (11)
  - CANDIDIASIS [None]
  - COMA HEPATIC [None]
  - DRUG INTERACTION [None]
  - DRUG LEVEL INCREASED [None]
  - FAILURE TO THRIVE [None]
  - HEPATIC FAILURE [None]
  - ODYNOPHAGIA [None]
  - OESOPHAGEAL CANDIDIASIS [None]
  - RENAL TUBULAR DISORDER [None]
  - THERAPY NON-RESPONDER [None]
  - WEIGHT DECREASED [None]
